FAERS Safety Report 7972160-7 (Version None)
Quarter: 2011Q4

REPORT INFORMATION
  Report Type: 
  Country: None (occurrence: None)
  Receive Date: 20111212
  Receipt Date: 20111208
  Transmission Date: 20120403
  Serious: Yes (Hospitalization, Other)
  Sender: FDA-Public Use
  Company Number: US-MERCK-1109USA01003

PATIENT
  Age: 80 Year
  Sex: Female

DRUGS (3)
  1. FOSAMAX [Suspect]
     Indication: OSTEOPOROSIS
     Route: 048
     Dates: start: 20030103, end: 20070126
  2. VITAMIN D (UNSPECIFIED) [Concomitant]
     Route: 065
     Dates: start: 20020101
  3. FOSAMAX [Suspect]
     Indication: OSTEOPENIA
     Route: 048
     Dates: start: 20030103, end: 20070126

REACTIONS (23)
  - IRON DEFICIENCY ANAEMIA [None]
  - PERICARDITIS [None]
  - ARTHROPATHY [None]
  - BACK DISORDER [None]
  - RECTAL FISSURE [None]
  - OSTEOARTHRITIS [None]
  - IMPAIRED FASTING GLUCOSE [None]
  - URINARY TRACT INFECTION PSEUDOMONAL [None]
  - TENDON RUPTURE [None]
  - CATARACT [None]
  - FEMUR FRACTURE [None]
  - TENDON DISORDER [None]
  - BLADDER SPASM [None]
  - FOOT FRACTURE [None]
  - GASTROINTESTINAL HAEMORRHAGE [None]
  - APPENDIX DISORDER [None]
  - LOW TURNOVER OSTEOPATHY [None]
  - URINARY TRACT INFECTION [None]
  - PEPTIC ULCER HAEMORRHAGE [None]
  - TENDONITIS [None]
  - HEART RATE IRREGULAR [None]
  - FALL [None]
  - VITAMIN D DECREASED [None]
